FAERS Safety Report 9472227 (Version 2)
Quarter: 2013Q3

REPORT INFORMATION
  Report Type: Report from Study
  Country: GB (occurrence: GB)
  Receive Date: 20130823
  Receipt Date: 20130823
  Transmission Date: 20140515
  Serious: Yes (Other)
  Sender: FDA-Public Use
  Company Number: GB-JNJFOC-20130509430

PATIENT
  Sex: Male

DRUGS (5)
  1. SIMPONI [Suspect]
     Indication: PSORIATIC ARTHROPATHY
     Route: 058
     Dates: start: 20130208
  2. SIMPONI [Suspect]
     Indication: PSORIATIC ARTHROPATHY
     Route: 058
     Dates: start: 20130408, end: 20130408
  3. LEFLUNOMIDE [Suspect]
     Indication: PSORIATIC ARTHROPATHY
     Route: 065
     Dates: end: 201305
  4. LEVOTHYROXINE [Concomitant]
     Route: 065
  5. TRAMADOL [Concomitant]
     Indication: PAIN
     Route: 065

REACTIONS (1)
  - Lower respiratory tract infection [Recovering/Resolving]
